FAERS Safety Report 8987582 (Version 2)
Quarter: 2013Q2

REPORT INFORMATION
  Report Type: Report from Study
  Country: ES (occurrence: ES)
  Receive Date: 20121227
  Receipt Date: 20130520
  Transmission Date: 20140414
  Serious: Yes (Life-Threatening, Hospitalization, Other)
  Sender: FDA-Public Use
  Company Number: ES-009507513-1212ESP009348

PATIENT
  Age: 81 Year
  Sex: Male
  Weight: 84 kg

DRUGS (12)
  1. EZETIMIBE (+) SIMVASTATIN [Suspect]
     Indication: ACUTE CORONARY SYNDROME
     Dosage: UNK
     Route: 048
     Dates: start: 20070419
  2. TRANGOREX [Concomitant]
     Dosage: 200MG DAILY
     Route: 048
     Dates: start: 20111031
  3. ATORVASTATIN [Concomitant]
     Dosage: 20MG DAILY
     Route: 048
     Dates: start: 20111213
  4. ADIRO [Concomitant]
     Dosage: 100MG DAILY
     Route: 048
     Dates: start: 20070419, end: 20121025
  5. CARVEDILOL [Concomitant]
     Dosage: 25MG DAILY
     Route: 048
     Dates: start: 20111208
  6. ENALAPRIL MALEATE [Concomitant]
     Dosage: 15MG DAILY
     Route: 048
     Dates: start: 20121010
  7. SINTROM [Concomitant]
     Dosage: UNK, PRN
     Route: 048
     Dates: start: 20111031
  8. PANTOPRAZOLE [Concomitant]
     Dosage: 40MG DAILY
     Route: 048
     Dates: start: 20111031
  9. NITROGLYCERIN [Concomitant]
     Dosage: 10MG DAILY
     Route: 062
     Dates: start: 20101206
  10. IMUREL [Concomitant]
     Dosage: 150MG DAILY
     Route: 048
     Dates: start: 20110729
  11. PENTASA [Concomitant]
     Dosage: 2G DAILY
     Route: 048
  12. RANOLAZINE HYDROCHLORIDE [Concomitant]
     Dosage: 750MG DAILY
     Route: 048
     Dates: start: 20111031

REACTIONS (1)
  - Adenocarcinoma gastric [Unknown]
